FAERS Safety Report 4780999-4 (Version None)
Quarter: 2005Q3

REPORT INFORMATION
  Report Type: 
  Country: None (occurrence: None)
  Receive Date: 20050926
  Receipt Date: 20050915
  Transmission Date: 20060218
  Serious: Yes (Life-Threatening)
  Sender: FDA-Public Use
  Company Number: 2005123895

PATIENT
  Age: 74 Year
  Sex: Male
  Weight: 75 kg

DRUGS (3)
  1. FRAGMIN [Suspect]
     Indication: HIP ARTHROPLASTY
     Dosage: 5000 I.U. ( 1 IN 1 D), SUBCUTANEOUS
     Route: 058
     Dates: start: 20050830, end: 20050902
  2. INDCID (INDOMETACIN) [Concomitant]
  3. PANTOPRAZOLE SODIUM [Concomitant]

REACTIONS (1)
  - BRAIN STEM SYNDROME [None]
